FAERS Safety Report 10927188 (Version 2)
Quarter: 2015Q3

REPORT INFORMATION
  Report Type: Spontaneous
  Country: CA (occurrence: CA)
  Receive Date: 20150318
  Receipt Date: 20150803
  Transmission Date: 20151125
  Serious: Yes (Death, Life-Threatening)
  Sender: FDA-Public Use
  Company Number: CA-009507513-1503CAN008883

PATIENT
  Age: 76 Year
  Sex: Female

DRUGS (1)
  1. FOSAMAX [Suspect]
     Active Substance: ALENDRONATE SODIUM
     Indication: OSTEOPOROSIS
     Dosage: 70 MG, UNK
     Route: 048
     Dates: start: 2014

REACTIONS (22)
  - Swollen tongue [Unknown]
  - Pharyngeal oedema [Unknown]
  - Dizziness [Not Recovered/Not Resolved]
  - Bone pain [Unknown]
  - Apparent death [Fatal]
  - Dyspepsia [Unknown]
  - Oesophageal ulcer [Unknown]
  - Dyspnoea [Unknown]
  - Muscle spasms [Not Recovered/Not Resolved]
  - General physical health deterioration [Not Recovered/Not Resolved]
  - Myalgia [Not Recovered/Not Resolved]
  - Mouth ulceration [Not Recovered/Not Resolved]
  - Speech disorder [Not Recovered/Not Resolved]
  - Weight decreased [Unknown]
  - Mastication disorder [Not Recovered/Not Resolved]
  - Jaw disorder [Not Recovered/Not Resolved]
  - Dysphagia [Not Recovered/Not Resolved]
  - Dry mouth [Not Recovered/Not Resolved]
  - Chest pain [Unknown]
  - Swelling face [Unknown]
  - Choking [Not Recovered/Not Resolved]
  - Arthralgia [Not Recovered/Not Resolved]
